FAERS Safety Report 9381022 (Version 3)
Quarter: 2015Q4

REPORT INFORMATION
  Report Type: Report from Study
  Country: US (occurrence: US)
  Receive Date: 20130703
  Receipt Date: 20151013
  Transmission Date: 20160305
  Serious: Yes (Hospitalization)
  Sender: FDA-Public Use
  Company Number: US-ROCHE-1243035

PATIENT
  Sex: Male

DRUGS (16)
  1. XELODA [Suspect]
     Active Substance: CAPECITABINE
     Indication: COLORECTAL CANCER
     Route: 048
     Dates: start: 20130129, end: 20130312
  2. ZOFRAN [Concomitant]
     Active Substance: ONDANSETRON HYDROCHLORIDE
     Route: 065
  3. NEURONTIN [Concomitant]
     Active Substance: GABAPENTIN
     Route: 065
  4. XELODA [Suspect]
     Active Substance: CAPECITABINE
     Dosage: 3 TABLET 2 A DAY MONDAY -FRIDAY
     Route: 048
  5. VITAMIN D3 [Concomitant]
     Active Substance: CHOLECALCIFEROL
     Dosage: 2000 UNITS
     Route: 065
  6. OXYCODONE HYDROCHLORIDE. [Concomitant]
     Active Substance: OXYCODONE HYDROCHLORIDE
     Route: 065
  7. XELODA [Suspect]
     Active Substance: CAPECITABINE
     Dosage: DURING RADIATION
     Route: 048
  8. XELODA [Suspect]
     Active Substance: CAPECITABINE
     Route: 048
     Dates: end: 20140106
  9. MAGNESIUM CARBONATE [Concomitant]
     Active Substance: MAGNESIUM CARBONATE
     Dosage: 311/232 MG
     Route: 065
  10. PROCHLORPERAZINE MALEATE. [Concomitant]
     Active Substance: PROCHLORPERAZINE MALEATE
     Route: 065
  11. FLUOXETINE [Concomitant]
     Active Substance: FLUOXETINE HYDROCHLORIDE
     Route: 065
  12. SALMON OIL [Concomitant]
     Active Substance: FISH OIL
     Route: 065
  13. GARLIC. [Concomitant]
     Active Substance: GARLIC
     Route: 065
  14. XELODA [Suspect]
     Active Substance: CAPECITABINE
     Dosage: 4 TABLET EVERY 12 HOURS
     Route: 048
  15. FISH OIL [Concomitant]
     Active Substance: FISH OIL
     Route: 065
  16. AMBIEN [Concomitant]
     Active Substance: ZOLPIDEM TARTRATE
     Route: 065

REACTIONS (11)
  - Rectal discharge [Unknown]
  - Constipation [Not Recovered/Not Resolved]
  - Upper respiratory tract infection [Unknown]
  - Asthenia [Not Recovered/Not Resolved]
  - Sneezing [Unknown]
  - Vomiting [Unknown]
  - Restless legs syndrome [Unknown]
  - Intestinal obstruction [Not Recovered/Not Resolved]
  - Abdominal pain [Not Recovered/Not Resolved]
  - Neuropathy peripheral [Unknown]
  - Cough [Unknown]
